FAERS Safety Report 8914655 (Version 2)
Quarter: 2013Q1

REPORT INFORMATION
  Report Type: Spontaneous
  Country: SE (occurrence: SE)
  Receive Date: 20121119
  Receipt Date: 20130207
  Transmission Date: 20140127
  Serious: Yes (Life-Threatening, Hospitalization)
  Sender: FDA-Public Use
  Company Number: SE-NOVOPROD-360097

PATIENT
  Age: 13 Year
  Sex: Female

DRUGS (2)
  1. NOVORAPID [Suspect]
     Indication: TYPE 1 DIABETES MELLITUS
     Dosage: 5-6 IU X 6
     Route: 065
  2. LEVEMIR [Suspect]
     Indication: TYPE 1 DIABETES MELLITUS
     Dosage: 13+0+18
     Route: 065

REACTIONS (3)
  - Muscle spasms [Recovered/Resolved]
  - Wrong drug administered [Recovered/Resolved]
  - Blood glucose decreased [Recovered/Resolved]
